FAERS Safety Report 13229954 (Version 3)
Quarter: 2017Q1

REPORT INFORMATION
  Report Type: Spontaneous
  Country: US (occurrence: US)
  Receive Date: 20170214
  Receipt Date: 20170314
  Transmission Date: 20170428
  Serious: No
  Sender: FDA-Public Use
  Company Number: US-PFIZER INC-2017063867

PATIENT
  Age: 67 Year
  Sex: Male

DRUGS (2)
  1. XELJANZ [Suspect]
     Active Substance: TOFACITINIB CITRATE
     Indication: RHEUMATOID ARTHRITIS
     Dosage: 5 MG, TWICE A DAY
     Dates: start: 201610, end: 201612
  2. NABUMETONE. [Concomitant]
     Active Substance: NABUMETONE
     Dosage: 750 MG, 2X/DAY
     Dates: start: 2000

REACTIONS (1)
  - Lymphadenopathy [Recovered/Resolved]

NARRATIVE: CASE EVENT DATE: 201612
